FAERS Safety Report 10065205 (Version 2)
Quarter: 2014Q2

REPORT INFORMATION
  Report Type: Spontaneous
  Country: BR (occurrence: BR)
  Receive Date: 20140408
  Receipt Date: 20140408
  Transmission Date: 20141212
  Serious: Yes (Other)
  Sender: FDA-Public Use
  Company Number: BR-ASTRAZENECA-2013SE80815

PATIENT
  Age: 11425 Day
  Sex: Female

DRUGS (4)
  1. SYMBICORT TURBUHALER [Suspect]
     Indication: ASTHMA
     Dosage: 160/4.5 MCG, BID
     Route: 055
     Dates: start: 20130930
  2. BUSONID [Suspect]
     Indication: RHINITIS
     Route: 045
     Dates: start: 2013
  3. OMEGA 3 [Concomitant]
     Indication: PREGNANCY
     Dosage: DAILY
     Dates: start: 2013
  4. MATERNA [Concomitant]
     Indication: PREGNANCY
     Dosage: DAILY
     Dates: start: 2013

REACTIONS (2)
  - Ureteric dilatation [Recovered/Resolved]
  - Exposure during pregnancy [Recovered/Resolved]
